FAERS Safety Report 8135425-4 (Version None)
Quarter: 2012Q1

REPORT INFORMATION
  Report Type: 
  Country: None (occurrence: None)
  Receive Date: 20120214
  Receipt Date: 20120208
  Transmission Date: 20120608
  Serious: Yes (Death)
  Sender: FDA-Public Use
  Company Number: DE-ROCHE-1039305

PATIENT

DRUGS (1)
  1. MABTHERA [Suspect]
     Indication: MALIGNANT LYMPHOID NEOPLASM

REACTIONS (1)
  - LYMPHOMA [None]
